FAERS Safety Report 6335376-1 (Version None)
Quarter: 2009Q3

REPORT INFORMATION
  Report Type: 
  Country: None (occurrence: None)
  Receive Date: 20090831
  Receipt Date: 20090820
  Transmission Date: 20100115
  Serious: Yes (Other)
  Sender: FDA-Public Use
  Company Number: AU-TEVA-207199ISR

PATIENT

DRUGS (1)
  1. GLATIRAMER ACETATE [Suspect]
     Route: 058

REACTIONS (3)
  - LYMPHADENOPATHY [None]
  - LYMPHOMA [None]
  - WEIGHT INCREASED [None]
